FAERS Safety Report 5086834-1 (Version None)
Quarter: 2006Q3

REPORT INFORMATION
  Report Type: 
  Country: None (occurrence: None)
  Receive Date: 20060823
  Receipt Date: 20060711
  Transmission Date: 20061208
  Serious: Yes (Other)
  Sender: FDA-Public Use
  Company Number: US-BOEHRINGER INGELHEIM PHARMACEUTICALS, INC.-2006-BP-08670PF

PATIENT
  Sex: Male
  Weight: 106.59 kg

DRUGS (10)
  1. SPIRIVA [Suspect]
     Route: 055
  2. LIPITOR [Suspect]
     Indication: BLOOD CHOLESTEROL
  3. GLUCOTROL XL [Suspect]
     Indication: DIABETES MELLITUS
  4. ACCUPRIL [Suspect]
     Indication: BLOOD PRESSURE
  5. PLAVIX [Concomitant]
  6. UNIPHYL [Concomitant]
  7. VERAPAMIL [Concomitant]
  8. ASPIRIN [Concomitant]
  9. ADVAIR DISKUS 100/50 [Concomitant]
  10. COMBIVENT [Concomitant]

REACTIONS (5)
  - ARTERIAL DISORDER [None]
  - BLOOD CHOLESTEROL [None]
  - BLOOD PRESSURE [None]
  - DIABETES MELLITUS [None]
  - DYSPNOEA [None]
